FAERS Safety Report 10034829 (Version 3)
Quarter: 2014Q4

REPORT INFORMATION
  Report Type: Other
  Country: IT (occurrence: IT)
  Receive Date: 20140325
  Receipt Date: 20141118
  Transmission Date: 20150528
  Serious: Yes (Other)
  Sender: FDA-Public Use
  Company Number: IT-VERTEX PHARMACEUTICALS INC-2014-001423

PATIENT
  Age: 48 Year
  Sex: Male
  Weight: 77 kg

DRUGS (4)
  1. INCIVO [Suspect]
     Active Substance: TELAPREVIR
     Indication: ANTIVIRAL TREATMENT
     Dosage: 2250 MG, QD
     Route: 048
     Dates: start: 20131113, end: 20140204
  2. PEGASYS [Interacting]
     Active Substance: PEGINTERFERON ALFA-2A
     Indication: ANTIVIRAL TREATMENT
     Dosage: 180 ?G, QW
     Route: 058
     Dates: start: 20131009, end: 20140225
  3. COPEGUS [Interacting]
     Active Substance: RIBAVIRIN
     Indication: ANTIVIRAL TREATMENT
     Dosage: 5 TABLETS
     Route: 048
     Dates: start: 20131009, end: 20131203
  4. COPEGUS [Interacting]
     Active Substance: RIBAVIRIN
     Dosage: 3 TABLETS
     Route: 048
     Dates: start: 20131203

REACTIONS (2)
  - Pancytopenia [Recovered/Resolved]
  - Drug interaction [Recovered/Resolved]

NARRATIVE: CASE EVENT DATE: 20131203
